FAERS Safety Report 5996834-2 (Version None)
Quarter: 2008Q4

REPORT INFORMATION
  Report Type: 
  Country: None (occurrence: None)
  Receive Date: 20081212
  Receipt Date: 20081027
  Transmission Date: 20090506
  Serious: No
  Sender: FDA-Public Use
  Company Number: US-ABBOTT-08P-163-0484013-00

PATIENT
  Sex: Female
  Weight: 82.628 kg

DRUGS (8)
  1. HUMIRA [Suspect]
     Indication: ARTHRITIS
     Route: 058
     Dates: start: 20081013
  2. MESALAMINE [Concomitant]
     Indication: DRUG USE FOR UNKNOWN INDICATION
     Route: 048
  3. LEFLUNOMIDE [Concomitant]
     Indication: PAIN
     Route: 048
  4. METHOTREXATE [Concomitant]
     Indication: ARTHRITIS
     Route: 050
  5. HYDROCODONE BITARTRATE [Concomitant]
     Indication: PAIN
     Route: 048
  6. PHENYTOIN [Concomitant]
     Indication: DRUG USE FOR UNKNOWN INDICATION
     Route: 048
  7. LEVOTHYROXINE SODIUM [Concomitant]
     Indication: DRUG USE FOR UNKNOWN INDICATION
     Route: 048
  8. HYDROXYZINE [Concomitant]
     Indication: DRUG USE FOR UNKNOWN INDICATION
     Route: 048

REACTIONS (3)
  - CONTUSION [None]
  - INJECTION SITE NODULE [None]
  - NASOPHARYNGITIS [None]
